FAERS Safety Report 6253921-1 (Version None)
Quarter: 2009Q3

REPORT INFORMATION
  Report Type: 
  Country: None (occurrence: None)
  Receive Date: 20090701
  Receipt Date: 20090701
  Transmission Date: 20100115
  Serious: Yes (Other)
  Sender: FDA-Public Use
  Company Number: None

PATIENT
  Age: 82 Year
  Sex: Female

DRUGS (2)
  1. DORZOLAMIDE HCL AND TIMOLOL MALEATE [Suspect]
     Indication: OPEN ANGLE GLAUCOMA
     Dosage: 1 GTT BID OU
     Dates: start: 20090112, end: 20090203
  2. COSOPT [Suspect]

REACTIONS (4)
  - EYE IRRITATION [None]
  - EYE PRURITUS [None]
  - OCULAR HYPERAEMIA [None]
  - PRODUCT SUBSTITUTION ISSUE [None]
